FAERS Safety Report 12775246 (Version 1)
Quarter: 2016Q3

REPORT INFORMATION
  Report Type: Spontaneous
  Country: US (occurrence: US)
  Receive Date: 20160923
  Receipt Date: 20160923
  Transmission Date: 20161109
  Serious: Yes (Hospitalization)
  Sender: FDA-Public Use
  Company Number: None

PATIENT
  Age: 22 Year
  Sex: Male

DRUGS (11)
  1. PROTONIX [Concomitant]
     Active Substance: PANTOPRAZOLE SODIUM
  2. HYCOSAMINE [Concomitant]
  3. BACLOFEN. [Concomitant]
     Active Substance: BACLOFEN
  4. LAMOTRIGINE. [Concomitant]
     Active Substance: LAMOTRIGINE
  5. TOBI [Suspect]
     Active Substance: TOBRAMYCIN
     Indication: CHRONIC RESPIRATORY FAILURE
     Dosage: TOBI 300MG - BID - NEBULIZER
     Dates: start: 20150207
  6. GABITRIL [Concomitant]
     Active Substance: TIAGABINE HYDROCHLORIDE
  7. DIAZEPAM. [Concomitant]
     Active Substance: DIAZEPAM
  8. PREDNISONE. [Concomitant]
     Active Substance: PREDNISONE
  9. ANDROGEL [Concomitant]
     Active Substance: TESTOSTERONE
  10. PREVACID [Concomitant]
     Active Substance: LANSOPRAZOLE
  11. SYNTHROID [Concomitant]
     Active Substance: LEVOTHYROXINE SODIUM

REACTIONS (1)
  - Respiratory failure [None]
